FAERS Safety Report 14731369 (Version 7)
Quarter: 2019Q1

REPORT INFORMATION
  Report Type: Spontaneous
  Country: FR (occurrence: FR)
  Receive Date: 20180407
  Receipt Date: 20190111
  Transmission Date: 20190417
  Serious: Yes (Hospitalization, Other)
  Sender: FDA-Public Use
  Company Number: FR-AUROBINDO-AUR-APL-2018-017087

PATIENT
  Age: 75 Year
  Sex: Male
  Weight: 101 kg

DRUGS (11)
  1. TRAMADOL. [Suspect]
     Active Substance: TRAMADOL
     Indication: GAIT DISTURBANCE
     Dosage: UNK, UNKNOWN FREQ.
     Route: 048
     Dates: end: 20180217
  2. NOVONORM [Suspect]
     Active Substance: REPAGLINIDE
     Indication: DIABETES MELLITUS
     Dosage: UNK, UNKNOWN FREQ.
     Route: 048
     Dates: end: 20180217
  3. XTANDI [Suspect]
     Active Substance: ENZALUTAMIDE
     Indication: PROSTATE CANCER METASTATIC
     Dosage: 120 MILLIGRAM
     Route: 048
     Dates: start: 201708
  4. ESOMEPRAZOLE. [Suspect]
     Active Substance: ESOMEPRAZOLE MAGNESIUM
     Indication: PRODUCT USED FOR UNKNOWN INDICATION
     Dosage: NOT REPORTED
     Route: 048
     Dates: end: 20180217
  5. XTANDI [Suspect]
     Active Substance: ENZALUTAMIDE
     Dosage: 40 MILLIGRAM, ONCE A DAY
     Route: 048
     Dates: start: 201708
  6. INNOHEP [Suspect]
     Active Substance: TINZAPARIN SODIUM
     Indication: PULMONARY EMBOLISM
     Dosage: 1 DOSAGE FORM, ONCE A DAY
     Route: 058
     Dates: start: 201709
  7. AMLOR [Suspect]
     Active Substance: AMLODIPINE BESYLATE
     Indication: HYPERTENSION
     Dosage: UNK, UNKNOWN FREQ.
     Route: 048
     Dates: start: 20180217, end: 20180217
  8. LIPANTHYL [Suspect]
     Active Substance: FENOFIBRATE
     Indication: DYSLIPIDAEMIA
     Dosage: 145 MILLIGRAM
     Route: 048
     Dates: end: 20180217
  9. DECAPEPTYL                         /00486501/ [Suspect]
     Active Substance: GONADORELIN
     Indication: PROSTATE CANCER METASTATIC
     Dosage: 1 DOSAGE FORM, CYCLICAL
     Route: 030
  10. SEROPLEX [Suspect]
     Active Substance: ESCITALOPRAM OXALATE
     Indication: DEPRESSION
     Dosage: 10 MILLIGRAM
     Route: 048
     Dates: end: 20180217
  11. DECAPEPTYL (ACETATE) [Suspect]
     Active Substance: TRIPTORELIN ACETATE
     Indication: PROSTATE CANCER METASTATIC
     Dosage: 1 DOSAGE FORM, CYCLICAL
     Route: 030

REACTIONS (2)
  - Cholestasis [Not Recovered/Not Resolved]
  - Prescribed underdose [Unknown]

NARRATIVE: CASE EVENT DATE: 201708
